FAERS Safety Report 13353760 (Version 5)
Quarter: 2017Q3

REPORT INFORMATION
  Report Type: Report from Study
  Country: US (occurrence: US)
  Receive Date: 20170321
  Receipt Date: 20170714
  Transmission Date: 20171127
  Serious: No
  Sender: FDA-Public Use
  Company Number: US-AMGEN-USASL2017039644

PATIENT
  Age: 63 Year
  Sex: Female

DRUGS (1)
  1. ENBREL [Suspect]
     Active Substance: ETANERCEPT
     Indication: RHEUMATOID ARTHRITIS
     Dosage: 50 MG, QWK
     Route: 065

REACTIONS (8)
  - Headache [Unknown]
  - Fatigue [Unknown]
  - Aphonia [Unknown]
  - Vision blurred [Unknown]
  - Pain [Unknown]
  - Asthenia [Unknown]
  - Chest pain [Unknown]
  - Drug dose omission [Unknown]
